FAERS Safety Report 5594191-7 (Version None)
Quarter: 2008Q1

REPORT INFORMATION
  Report Type: 
  Country: None (occurrence: None)
  Receive Date: 20080115
  Receipt Date: 20080103
  Transmission Date: 20080703
  Serious: Yes (Other)
  Sender: FDA-Public Use
  Company Number: 2008SP000446

PATIENT
  Age: 43 Year
  Sex: Male

DRUGS (3)
  1. MIRALAX [Suspect]
     Indication: CONSTIPATION
     Dosage: PO
     Route: 048
     Dates: start: 20071214
  2. LIPITOR [Concomitant]
  3. PREVACID [Concomitant]

REACTIONS (1)
  - RECTAL HAEMORRHAGE [None]
